FAERS Safety Report 10085446 (Version 3)
Quarter: 2014Q2

REPORT INFORMATION
  Report Type: Report from Study
  Country: US (occurrence: US)
  Receive Date: 20140418
  Receipt Date: 20140515
  Transmission Date: 20141212
  Serious: Yes (Hospitalization)
  Sender: FDA-Public Use
  Company Number: US-BIOGENIDEC-2014BI035126

PATIENT
  Age: 44 Year
  Sex: Female

DRUGS (1)
  1. AVONEX [Suspect]
     Indication: MULTIPLE SCLEROSIS
     Route: 030
     Dates: start: 20120802, end: 20140118

REACTIONS (9)
  - Abdominal pain lower [Recovered/Resolved]
  - Conjunctivitis [Recovered/Resolved]
  - Autoimmune disorder [Recovered/Resolved]
  - Injection site pain [Recovered/Resolved]
  - Ovarian cyst ruptured [Recovered/Resolved]
  - Tooth abscess [Recovered/Resolved]
  - Swelling face [Recovered/Resolved]
  - Hiatus hernia [Not Recovered/Not Resolved]
  - Dermatitis allergic [Not Recovered/Not Resolved]
